FAERS Safety Report 12313687 (Version 4)
Quarter: 2016Q4

REPORT INFORMATION
  Report Type: Spontaneous
  Country: JP (occurrence: JP)
  Receive Date: 20160428
  Receipt Date: 20161216
  Transmission Date: 20170207
  Serious: Yes (Death, Hospitalization, Other)
  Sender: FDA-Public Use
  Company Number: JP-ELI_LILLY_AND_COMPANY-JP201604008205

PATIENT
  Age: 0 Year
  Sex: Male
  Weight: 46 kg

DRUGS (7)
  1. CYRAMZA [Suspect]
     Active Substance: RAMUCIRUMAB
     Indication: METASTATIC GASTRIC CANCER
     Dosage: 375 MG, SINGLE
     Route: 042
     Dates: start: 20160405, end: 20160405
  2. TAKEPRON [Concomitant]
     Active Substance: LANSOPRAZOLE
     Indication: PROPHYLAXIS AGAINST GASTROINTESTINAL ULCER
     Dosage: 30 MG, QD
     Route: 048
     Dates: start: 20150609, end: 20160412
  3. MIYA-BM [Concomitant]
     Active Substance: CLOSTRIDIUM BUTYRICUM SPORES STRAIN M-55
     Indication: PROPHYLAXIS AGAINST DIARRHOEA
     Dosage: 2 DF, TID
     Route: 048
     Dates: start: 20160411, end: 20160412
  4. ALDACTONE [Concomitant]
     Active Substance: SPIRONOLACTONE
     Indication: ASCITES
     Dosage: 25 MG, BID
     Route: 048
     Dates: start: 20150605, end: 20160411
  5. PACLITAXEL. [Concomitant]
     Active Substance: PACLITAXEL
     Indication: METASTATIC GASTRIC CANCER
     Dosage: 110 MG, SINGLE
     Route: 042
     Dates: start: 20160405, end: 20160405
  6. POLAPREZINC [Concomitant]
     Active Substance: POLAPREZINC
     Indication: DYSGEUSIA
     Dosage: 75 MG, BID
     Route: 048
     Dates: start: 20151110, end: 20160411
  7. CALONAL [Concomitant]
     Active Substance: ACETAMINOPHEN
     Indication: PYREXIA
     Dosage: 400 MG, PRN
     Route: 048

REACTIONS (10)
  - Acute respiratory failure [Fatal]
  - Acute kidney injury [Unknown]
  - Septic shock [Fatal]
  - Febrile neutropenia [Fatal]
  - Anaemia [Unknown]
  - Bone marrow failure [Fatal]
  - Disseminated intravascular coagulation [Fatal]
  - Diarrhoea [Unknown]
  - Stomatitis [Unknown]
  - Circulatory collapse [Fatal]

NARRATIVE: CASE EVENT DATE: 20160411
